FAERS Safety Report 5149605-3 (Version None)
Quarter: 2006Q4

REPORT INFORMATION
  Report Type: 
  Country: None (occurrence: None)
  Receive Date: 20061113
  Receipt Date: 20060607
  Transmission Date: 20070319
  Serious: No
  Sender: FDA-Public Use
  Company Number: S2006US09899

PATIENT
  Sex: Male

DRUGS (3)
  1. COREG [Suspect]
     Indication: DRUG USE FOR UNKNOWN INDICATION
     Route: 048
  2. LASIX [Concomitant]
  3. CAPOTEN [Concomitant]

REACTIONS (1)
  - HYPERTENSION [None]
